FAERS Safety Report 15411111 (Version 1)
Quarter: 2018Q3

REPORT INFORMATION
  Report Type: Spontaneous
  Country: US (occurrence: US)
  Receive Date: 20180919
  Receipt Date: 20180919
  Transmission Date: 20181010
  Serious: Yes (Other)
  Sender: FDA-Public Use
  Company Number: None

PATIENT
  Age: 68 Year
  Sex: Male
  Weight: 110.7 kg

DRUGS (14)
  1. CLONAZAEPAM 1MG W/DINNER [Concomitant]
  2. GABAPENTIN 300MG [Concomitant]
     Active Substance: GABAPENTIN
  3. ZOLPIDEM ER 12.5MG [Concomitant]
  4. CLOTRIMAZOLE  1%  CREAM 45GM [Concomitant]
  5. FENOFIBRATE 48MG [Concomitant]
  6. TIZANIDINE 4MG [Concomitant]
     Active Substance: TIZANIDINE
  7. ZOLPIDEM [Suspect]
     Active Substance: ZOLPIDEM\ZOLPIDEM TARTRATE
     Indication: RESTLESS LEGS SYNDROME
     Dosage: ?          QUANTITY:1 TABLET(S);?
     Route: 048
     Dates: start: 20180808, end: 20180919
  8. CYNOCOBALAMIN  1000MCG/ML    INH/1ML [Concomitant]
  9. ZOLPIDEM [Suspect]
     Active Substance: ZOLPIDEM\ZOLPIDEM TARTRATE
     Indication: SLEEP DISORDER
     Dosage: ?          QUANTITY:1 TABLET(S);?
     Route: 048
     Dates: start: 20180808, end: 20180919
  10. CLOMIPRAMINE 50MG,QD [Concomitant]
  11. ASPIRIN 81 MG [Concomitant]
     Active Substance: ASPIRIN
  12. DULOXETINE DR 90MG. QD IN AM [Concomitant]
     Active Substance: DULOXETINE HYDROCHLORIDE
  13. OMEPRAZOLE 20MG [Concomitant]
     Active Substance: OMEPRAZOLE
  14. VITAMIN SILVER DAILY [Concomitant]

REACTIONS (8)
  - Depression [None]
  - Oxygen saturation decreased [None]
  - Blood pressure increased [None]
  - Product substitution issue [None]
  - Initial insomnia [None]
  - Drug ineffective [None]
  - Stress [None]
  - Suicidal ideation [None]

NARRATIVE: CASE EVENT DATE: 20180918
